FAERS Safety Report 8386588-7 (Version None)
Quarter: 2012Q2

REPORT INFORMATION
  Report Type: 
  Country: None (occurrence: None)
  Receive Date: 20120525
  Receipt Date: 20111129
  Transmission Date: 20120825
  Serious: No
  Sender: FDA-Public Use
  Company Number: US-GLAXOSMITHKLINE-A0955770A

PATIENT
  Age: 67 Year
  Sex: Female

DRUGS (1)
  1. VERAMYST [Suspect]
     Indication: CHRONIC SINUSITIS
     Dosage: 2SPR PER DAY
     Route: 045
     Dates: start: 20111129

REACTIONS (1)
  - NASAL DISCOMFORT [None]
